FAERS Safety Report 6979025-8 (Version None)
Quarter: 2010Q3

REPORT INFORMATION
  Report Type: 
  Country: None (occurrence: None)
  Receive Date: 20100824
  Receipt Date: 20100617
  Transmission Date: 20110219
  Serious: Yes (Other)
  Sender: FDA-Public Use
  Company Number: 310282

PATIENT
  Age: 38 Year
  Sex: Female
  Weight: 127 kg

DRUGS (3)
  1. VICTOZA [Suspect]
     Indication: INSULIN RESISTANT DIABETES
     Dosage: 0.6 MG, QD, SUBCUTANEOUS; 1.2 MG, QD, SUBCUTANEOUS
     Route: 058
     Dates: start: 20100510, end: 20100517
  2. VICTOZA [Suspect]
     Indication: INSULIN RESISTANT DIABETES
     Dosage: 0.6 MG, QD, SUBCUTANEOUS; 1.2 MG, QD, SUBCUTANEOUS
     Route: 058
     Dates: start: 20100518, end: 20100608
  3. IRON [Concomitant]

REACTIONS (2)
  - PANCREATITIS ACUTE [None]
  - WEIGHT DECREASED [None]
